FAERS Safety Report 8391649-2 (Version None)
Quarter: 2012Q2

REPORT INFORMATION
  Report Type: 
  Country: None (occurrence: None)
  Receive Date: 20120529
  Receipt Date: 20120521
  Transmission Date: 20120825
  Serious: Yes (Hospitalization, Other)
  Sender: FDA-Public Use
  Company Number: US-BAYER-2012-051280

PATIENT
  Age: 28 Year
  Sex: Female
  Weight: 72.109 kg

DRUGS (9)
  1. BEYAZ [Suspect]
  2. YASMIN [Suspect]
     Indication: ENDOMETRIOSIS
  3. YAZ [Suspect]
     Indication: HORMONE REPLACEMENT THERAPY
  4. TYLENOL [Concomitant]
  5. DROSPIRENONE AND ETHINYL ESTRADIOL [Suspect]
  6. RANITIDINE [Concomitant]
     Dosage: UNK UNK, BID AS NEEDED
     Route: 048
  7. FERROUS SULFATE TAB [Concomitant]
     Dosage: 325 MG, BID
  8. HYDROCODONE BITARTRATE [Concomitant]
     Dosage: 5/325 MG 4-6 HOURS AS NEEDED
  9. PHENERGAN [Concomitant]
     Dosage: EVERY 4 - 6 AS NEEDED

REACTIONS (3)
  - PULMONARY EMBOLISM [None]
  - PULMONARY INFARCTION [None]
  - CHOLECYSTITIS CHRONIC [None]
